FAERS Safety Report 7517462-3 (Version None)
Quarter: 2011Q2

REPORT INFORMATION
  Report Type: 
  Country: None (occurrence: None)
  Receive Date: 20110601
  Receipt Date: 20110526
  Transmission Date: 20111010
  Serious: Yes (Other)
  Sender: FDA-Public Use
  Company Number: VE-PFIZER INC-2011103225

PATIENT
  Age: 41 Year
  Sex: Female

DRUGS (4)
  1. NAPROXEN SODIUM [Concomitant]
  2. HIRUDOID [Concomitant]
  3. ZOLOFT [Suspect]
     Dosage: 50 MG, 1X/DAY
     Route: 048
     Dates: start: 20080101, end: 20100401
  4. ETOFENAMATE [Concomitant]

REACTIONS (6)
  - CERVICAL SPINE FLATTENING [None]
  - FALL [None]
  - HEADACHE [None]
  - WHIPLASH INJURY [None]
  - ROAD TRAFFIC ACCIDENT [None]
  - JOINT SPRAIN [None]
